FAERS Safety Report 6032404-8 (Version None)
Quarter: 2009Q1

REPORT INFORMATION
  Report Type: 
  Country: None (occurrence: None)
  Receive Date: 20090109
  Receipt Date: 20081229
  Transmission Date: 20090719
  Serious: Yes (Death, Hospitalization)
  Sender: FDA-Public Use
  Company Number: GB-PFIZER INC-2006146949

PATIENT

DRUGS (4)
  1. SUNITINIB MALATE [Suspect]
     Indication: RENAL CELL CARCINOMA
     Dosage: 50 MG, 1X/DAY
     Route: 048
     Dates: start: 20051124
  2. LANSOPRAZOLE [Concomitant]
     Route: 048
     Dates: start: 20060316
  3. DEXAMETHASONE TAB [Concomitant]
     Route: 048
     Dates: start: 20061102
  4. ACETAMINOPHEN W/ CODEINE [Concomitant]
     Route: 048
     Dates: start: 20051208

REACTIONS (2)
  - HYPOTHYROIDISM [None]
  - METASTASES TO CENTRAL NERVOUS SYSTEM [None]
